FAERS Safety Report 4680518-7 (Version None)
Quarter: 2005Q2

REPORT INFORMATION
  Report Type: 
  Country: None (occurrence: None)
  Receive Date: 20050602
  Receipt Date: 20050531
  Transmission Date: 20051028
  Serious: Yes (Life-Threatening, Disabling)
  Sender: FDA-Public Use
  Company Number: US-MERCK-0506USA00087

PATIENT
  Age: 53 Year
  Sex: Male

DRUGS (2)
  1. VIOXX [Suspect]
     Indication: PAIN
     Route: 048
     Dates: start: 20020401, end: 20040801
  2. HYDROCODONE BITARTRATE [Concomitant]
     Route: 065

REACTIONS (3)
  - DIABETES MELLITUS [None]
  - HYPERTENSION [None]
  - LOSS OF CONSCIOUSNESS [None]
